FAERS Safety Report 6822928-5 (Version None)
Quarter: 2010Q3

REPORT INFORMATION
  Report Type: 
  Country: None (occurrence: None)
  Receive Date: 20100702
  Receipt Date: 20100616
  Transmission Date: 20110219
  Serious: Yes (Disabling, Other)
  Sender: FDA-Public Use
  Company Number: ACO_01093_2010

PATIENT
  Sex: Female
  Weight: 54.4316 kg

DRUGS (7)
  1. AMPYRA [Suspect]
     Indication: GAIT DISTURBANCE
     Dosage: 10 MG BID ORAL, (10 MG QD ORAL)
     Route: 048
     Dates: start: 20100101, end: 20100101
  2. AMPYRA [Suspect]
     Indication: GAIT DISTURBANCE
     Dosage: 10 MG BID ORAL, (10 MG QD ORAL)
     Route: 048
     Dates: start: 20100101
  3. AVONEX [Concomitant]
  4. FOSAMAX [Concomitant]
  5. HYDROCODONE [Concomitant]
  6. MACRODANTIN [Concomitant]
  7. CYMBALTA [Concomitant]

REACTIONS (9)
  - ASTHENIA [None]
  - DIZZINESS [None]
  - FATIGUE [None]
  - FEELING ABNORMAL [None]
  - IMMOBILE [None]
  - MUSCULAR WEAKNESS [None]
  - PAIN IN JAW [None]
  - PRURITUS GENERALISED [None]
  - RASH ERYTHEMATOUS [None]
